FAERS Safety Report 11189144 (Version 1)
Quarter: 2015Q2

REPORT INFORMATION
  Report Type: Spontaneous
  Country: IT (occurrence: None)
  Receive Date: 20150611
  Receipt Date: 20150611
  Transmission Date: 20150821
  Serious: Yes (Other)
  Sender: FDA-Public Use
  Company Number: 2015AP009898

PATIENT
  Age: 35 Year
  Sex: Female

DRUGS (1)
  1. FERRIPROX [Suspect]
     Active Substance: DEFERIPRONE
     Indication: THALASSAEMIA BETA
     Route: 048
     Dates: start: 20150126, end: 20150515

REACTIONS (1)
  - Polyarthritis [None]

NARRATIVE: CASE EVENT DATE: 20150315
